FAERS Safety Report 21216733 (Version 1)
Quarter: 2022Q3

REPORT INFORMATION
  Report Type: Spontaneous
  Country: US (occurrence: None)
  Receive Date: 20220816
  Receipt Date: 20220816
  Transmission Date: 20221026
  Serious: No
  Sender: FDA-Public Use
  Company Number: US-ROCHE-2903055

PATIENT
  Sex: Female
  Weight: 91.708 kg

DRUGS (1)
  1. ALECENSA [Suspect]
     Active Substance: ALECTINIB HYDROCHLORIDE
     Indication: Lung adenocarcinoma
     Dosage: 4 CAPS TWICE A DAY ;ONGOING: NO
     Route: 048
     Dates: start: 202010

REACTIONS (1)
  - Oedema peripheral [Recovered/Resolved]
